FAERS Safety Report 6375690-7 (Version None)
Quarter: 2009Q3

REPORT INFORMATION
  Report Type: 
  Country: None (occurrence: None)
  Receive Date: 20090922
  Receipt Date: 20090922
  Transmission Date: 20100115
  Serious: Yes (Other)
  Sender: FDA-Public Use
  Company Number: None

PATIENT
  Age: 60 Year
  Sex: Female
  Weight: 85.7298 kg

DRUGS (4)
  1. CRESTOR [Suspect]
     Indication: BLOOD CHOLESTEROL INCREASED
     Dosage: 1 DAILY PO SEVERAL MONTHS IN 2006
     Route: 048
  2. LESCOL [Suspect]
     Indication: BLOOD CHOLESTEROL INCREASED
     Dosage: 1 DAILY PO SEVERAL MONTHS IN 2006
     Route: 048
  3. PREMPRO [Concomitant]
  4. ACIPHEX [Concomitant]

REACTIONS (1)
  - AMNESIA [None]
